FAERS Safety Report 6391656-5 (Version None)
Quarter: 2009Q4

REPORT INFORMATION
  Report Type: 
  Country: None (occurrence: None)
  Receive Date: 20091005
  Receipt Date: 20090925
  Transmission Date: 20100525
  Serious: Yes (Hospitalization)
  Sender: FDA-Public Use
  Company Number: 2009090037

PATIENT
  Age: 69 Year
  Sex: Male

DRUGS (8)
  1. TORSEMIDE [Suspect]
     Indication: ESSENTIAL HYPERTENSION
     Dosage: 30 MG (30 MG,1 IN 1 D),ORAL
     Route: 048
     Dates: start: 20081115, end: 20081201
  2. TILUR (ACEMETACIN) [Suspect]
     Dosage: 2 DOSAGE FORMS (1 DOSAGE FORMS,2 IN 1 D),ORAL
     Route: 048
     Dates: end: 20081225
  3. DIOVAN [Concomitant]
  4. CARVEDILOL [Concomitant]
  5. INSULATARD (INSULIN HUMAN) [Concomitant]
  6. NEXIUM [Concomitant]
  7. SIMCORA (SIMVASTATIN) [Concomitant]
  8. ASPIRIN [Concomitant]

REACTIONS (17)
  - ARTERIOSCLEROSIS [None]
  - ASTHENIA [None]
  - BACK PAIN [None]
  - BRADYCARDIA [None]
  - DIARRHOEA [None]
  - DYSPNOEA [None]
  - ELECTROCARDIOGRAM ABNORMAL [None]
  - GAIT DISTURBANCE [None]
  - HAEMODIALYSIS [None]
  - HYPERKALAEMIA [None]
  - HYPOTENSION [None]
  - LOSS OF CONSCIOUSNESS [None]
  - PALLOR [None]
  - PNEUMONIA [None]
  - RENAL FAILURE ACUTE [None]
  - SOMNOLENCE [None]
  - WEIGHT DECREASED [None]
